FAERS Safety Report 9322401 (Version 3)
Quarter: 2013Q3

REPORT INFORMATION
  Report Type: Spontaneous
  Country: DK (occurrence: DK)
  Receive Date: 20130531
  Receipt Date: 20130712
  Transmission Date: 20140515
  Serious: Yes (Other)
  Sender: FDA-Public Use
  Company Number: CHPA2012DK013496

PATIENT
  Age: 45 Year
  Sex: Female

DRUGS (1)
  1. NICOTINELL GUM [Suspect]
     Indication: SMOKING CESSATION THERAPY
     Dosage: 25-30 PIECES OF GUM, QD
     Dates: start: 201203

REACTIONS (2)
  - Drug dependence [Unknown]
  - Nicotine dependence [Unknown]
